FAERS Safety Report 5871162-4 (Version None)
Quarter: 2008Q3

REPORT INFORMATION
  Report Type: 
  Country: None (occurrence: None)
  Receive Date: 20080902
  Receipt Date: 20080815
  Transmission Date: 20090109
  Serious: Yes (Other)
  Sender: FDA-Public Use
  Company Number: PHBS2008US05461

PATIENT
  Age: 80 Year
  Sex: Female

DRUGS (5)
  1. VISUDYNE [Suspect]
     Indication: CHOROIDAL NEOVASCULARISATION
  2. LUCENTIS [Suspect]
     Indication: CHOROIDAL NEOVASCULARISATION
  3. BEVACIZUMAB [Suspect]
     Indication: CHOROIDAL NEOVASCULARISATION
     Dosage: 1.25 MG DAILY EY
  4. TRIAMCINOLONE [Suspect]
     Indication: CHOROIDAL NEOVASCULARISATION
     Dosage: 2 MG DAILY EY
  5. MACUGEN [Suspect]
     Indication: CHOROIDAL NEOVASCULARISATION

REACTIONS (1)
  - MACULAR OEDEMA [None]
